FAERS Safety Report 5097510-3 (Version None)
Quarter: 2006Q3

REPORT INFORMATION
  Report Type: 
  Country: None (occurrence: None)
  Receive Date: 20060901
  Receipt Date: 20060815
  Transmission Date: 20061208
  Serious: Yes (Hospitalization)
  Sender: FDA-Public Use
  Company Number: CA200608004898

PATIENT
  Age: 71 Year
  Sex: Male

DRUGS (4)
  1. HUMALOG [Suspect]
     Indication: DIABETES MELLITUS
     Dosage: SEE IMAGE
     Dates: start: 20031116
  2. HUMALOG [Suspect]
     Indication: DIABETES MELLITUS
     Dosage: SEE IMAGE
     Dates: start: 20031119
  3. HUMALOG [Suspect]
     Indication: DIABETES MELLITUS
     Dosage: SEE IMAGE
     Dates: start: 20031119
  4. HUMULIN N [Suspect]
     Indication: DIABETES MELLITUS
     Dosage: 56 U, EACH EVENING
     Dates: start: 20031101

REACTIONS (2)
  - PNEUMONIA [None]
  - SEPSIS [None]
